FAERS Safety Report 23468781 (Version 1)
Quarter: 2024Q1

REPORT INFORMATION
  Report Type: Spontaneous
  Country: NL (occurrence: NL)
  Receive Date: 20240202
  Receipt Date: 20240202
  Transmission Date: 20240410
  Serious: Yes (Other)
  Sender: FDA-Public Use
  Company Number: None

PATIENT
  Age: 52 Year
  Sex: Female
  Weight: 69 kg

DRUGS (1)
  1. METFORMIN [Suspect]
     Active Substance: METFORMIN HYDROCHLORIDE
     Indication: Diabetes mellitus
     Dosage: METFORMINE HYDROCHLORIDE, BRAND NAME NOT SPECIFIED
     Route: 065
     Dates: start: 20231108

REACTIONS (2)
  - Haematochezia [Recovering/Resolving]
  - Vaginal haemorrhage [Recovering/Resolving]
